FAERS Safety Report 6523288-X (Version None)
Quarter: 2009Q4

REPORT INFORMATION
  Report Type: 
  Country: None (occurrence: None)
  Receive Date: 20091231
  Receipt Date: 20091225
  Transmission Date: 20100525
  Serious: Yes (Other)
  Sender: FDA-Public Use
  Company Number: JP-ASTRAZENECA-2009SE06204

PATIENT
  Age: 15785 Day
  Sex: Female
  Weight: 62 kg

DRUGS (7)
  1. CRESTOR [Suspect]
     Indication: HYPERLIPIDAEMIA
     Route: 048
     Dates: start: 20090522, end: 20090525
  2. BASEN OD [Concomitant]
     Indication: DIABETES MELLITUS
     Route: 048
  3. AMLODIN OD [Concomitant]
     Indication: HYPERTENSION
     Route: 048
  4. AMARYL [Concomitant]
     Indication: DIABETES MELLITUS
     Route: 048
  5. AMOBAN [Concomitant]
     Indication: INSOMNIA
     Route: 048
  6. GRAMALIL [Concomitant]
     Indication: DEPRESSION
     Route: 048
  7. LENDORMIN D [Concomitant]
     Indication: INSOMNIA
     Route: 048

REACTIONS (1)
  - RENAL FAILURE ACUTE [None]
